FAERS Safety Report 4943912-2 (Version None)
Quarter: 2006Q1

REPORT INFORMATION
  Report Type: 
  Country: None (occurrence: None)
  Receive Date: 20060315
  Receipt Date: 20060301
  Transmission Date: 20060701
  Serious: Yes (Hospitalization)
  Sender: FDA-Public Use
  Company Number: US-MERCK-0603USA00463

PATIENT
  Age: 32 Year
  Sex: Male
  Weight: 84 kg

DRUGS (3)
  1. VIOXX [Suspect]
     Indication: PAIN IN EXTREMITY
     Route: 065
     Dates: start: 19990101, end: 20030901
  2. VIOXX [Suspect]
     Indication: BACK PAIN
     Route: 065
     Dates: start: 19990101, end: 20030901
  3. ADVIL [Concomitant]
     Route: 065

REACTIONS (9)
  - ABSCESS NECK [None]
  - ASTHENIA [None]
  - CEREBROVASCULAR ACCIDENT [None]
  - DEPRESSION [None]
  - HEADACHE [None]
  - HYPERTENSION [None]
  - ROTATOR CUFF REPAIR [None]
  - TRANSIENT ISCHAEMIC ATTACK [None]
  - VOMITING [None]
